FAERS Safety Report 6847386-6 (Version None)
Quarter: 2010Q3

REPORT INFORMATION
  Report Type: 
  Country: None (occurrence: None)
  Receive Date: 20100713
  Receipt Date: 20100628
  Transmission Date: 20110219
  Serious: Yes (Other)
  Sender: FDA-Public Use
  Company Number: 2010080650

PATIENT
  Age: 43 Year
  Sex: Female
  Weight: 68 kg

DRUGS (6)
  1. FRAGMIN [Suspect]
     Indication: ANTIPHOSPHOLIPID ANTIBODIES POSITIVE
     Dosage: SUBCUTANEOUS
     Route: 058
     Dates: start: 20100512
  2. FOLIC ACID [Concomitant]
  3. FERROUS SULFATE [Concomitant]
  4. PREDNISOLONE [Concomitant]
  5. HYDROXYCHLOROQUINE SULFATE [Concomitant]
  6. NIFEDIPINE [Concomitant]

REACTIONS (3)
  - DYSPNOEA [None]
  - ORAL DISORDER [None]
  - RASH GENERALISED [None]
